FAERS Safety Report 5831683-7 (Version None)
Quarter: 2008Q3

REPORT INFORMATION
  Report Type: 
  Country: None (occurrence: None)
  Receive Date: 20080730
  Receipt Date: 20080716
  Transmission Date: 20090109
  Serious: Yes (Other)
  Sender: FDA-Public Use
  Company Number: 2008AL008412

PATIENT
  Age: 63 Year
  Sex: Male
  Weight: 97.5234 kg

DRUGS (1)
  1. DIGOXIN [Suspect]
     Indication: ARRHYTHMIA
     Dosage: 0.25MG, PO
     Route: 048
     Dates: start: 20080208, end: 20080424

REACTIONS (4)
  - CARDIOACTIVE DRUG LEVEL ABOVE THERAPEUTIC [None]
  - DIZZINESS [None]
  - INFLUENZA LIKE ILLNESS [None]
  - NAUSEA [None]
